FAERS Safety Report 5477739-2 (Version None)
Quarter: 2007Q4

REPORT INFORMATION
  Report Type: 
  Country: None (occurrence: None)
  Receive Date: 20071002
  Receipt Date: 20071002
  Transmission Date: 20080405
  Serious: Yes (Other)
  Sender: FDA-Public Use
  Company Number: None

PATIENT
  Sex: Female
  Weight: 47.6277 kg

DRUGS (2)
  1. CIPROFLOXACIN HCL [Suspect]
     Indication: TOOTH ABSCESS
     Dosage: 500MG EVERY 12 HRS. PO
     Route: 048
     Dates: start: 20061228, end: 20070107
  2. LEVAQUIN [Suspect]
     Indication: SINUSITIS
     Dosage: 500MG 1 DAILY PO
     Route: 048
     Dates: start: 20051219, end: 20051225

REACTIONS (49)
  - AMNESIA [None]
  - ANXIETY [None]
  - BACK PAIN [None]
  - BACTERIAL INFECTION [None]
  - BLOOD CHOLESTEROL INCREASED [None]
  - BODY TEMPERATURE DECREASED [None]
  - CHEST PAIN [None]
  - CHILLS [None]
  - CONFUSIONAL STATE [None]
  - COORDINATION ABNORMAL [None]
  - CRYING [None]
  - DEPRESSION [None]
  - DISORIENTATION [None]
  - DISTURBANCE IN ATTENTION [None]
  - DIZZINESS [None]
  - DYSARTHRIA [None]
  - DYSPHEMIA [None]
  - DYSPNOEA [None]
  - EAR PAIN [None]
  - EMOTIONAL DISORDER [None]
  - FATIGUE [None]
  - FEELING ABNORMAL [None]
  - FLUSHING [None]
  - HEADACHE [None]
  - HYPERACUSIS [None]
  - HYPOACUSIS [None]
  - HYPOAESTHESIA [None]
  - INFECTION [None]
  - INFLUENZA LIKE ILLNESS [None]
  - JOINT STIFFNESS [None]
  - MENTAL IMPAIRMENT [None]
  - MIDDLE INSOMNIA [None]
  - MOOD SWINGS [None]
  - MUSCLE TWITCHING [None]
  - MUSCULAR WEAKNESS [None]
  - MUSCULOSKELETAL STIFFNESS [None]
  - NAUSEA [None]
  - NEPHROLITHIASIS [None]
  - NIGHT SWEATS [None]
  - PALPITATIONS [None]
  - PARAESTHESIA [None]
  - PHARYNGOLARYNGEAL PAIN [None]
  - PHOTOPHOBIA [None]
  - RASH PRURITIC [None]
  - SOMNOLENCE [None]
  - SPEECH DISORDER [None]
  - SWELLING FACE [None]
  - VISUAL DISTURBANCE [None]
  - VULVOVAGINAL MYCOTIC INFECTION [None]
